FAERS Safety Report 4524815-4 (Version None)
Quarter: 2004Q4

REPORT INFORMATION
  Report Type: 
  Country: None (occurrence: None)
  Receive Date: 20041117
  Receipt Date: 20031023
  Transmission Date: 20050328
  Serious: Yes (Other)
  Sender: FDA-Public Use
  Company Number: C2003-2846.01

PATIENT
  Age: 24 Year
  Sex: Male

DRUGS (11)
  1. CLOZAPINE [Suspect]
     Indication: PSYCHOTIC DISORDER
     Dosage: 25MG QD, ORAL
     Route: 048
     Dates: start: 20030520
  2. CLOZAPINE [Suspect]
     Indication: SCHIZOPHRENIA
     Dosage: 25MG QD, ORAL
     Route: 048
     Dates: start: 20030520
  3. CLOZAPINE [Suspect]
     Indication: PSYCHOTIC DISORDER
     Dosage: 200MG QD, ORAL
     Route: 048
     Dates: start: 20030520
  4. CLOZAPINE [Suspect]
     Indication: SCHIZOPHRENIA
     Dosage: 200MG QD, ORAL
     Route: 048
     Dates: start: 20030520
  5. METRONIDAZOLE [Suspect]
  6. CIPRO [Suspect]
  7. DIVALPROEX SODIUM [Concomitant]
  8. GABAPENTIN [Concomitant]
  9. HYOSCYAMINE [Concomitant]
  10. MESALAMINE [Concomitant]
  11. TOLTERODINE LA [Concomitant]

REACTIONS (3)
  - DRUG INTERACTION [None]
  - ENURESIS [None]
  - WHITE BLOOD CELL COUNT DECREASED [None]
